FAERS Safety Report 20204393 (Version 1)
Quarter: 2021Q4

REPORT INFORMATION
  Report Type: Spontaneous
  Country: FR (occurrence: FR)
  Receive Date: 20211220
  Receipt Date: 20211220
  Transmission Date: 20220303
  Serious: Yes (Hospitalization)
  Sender: FDA-Public Use
  Company Number: None

PATIENT
  Age: 27 Year
  Sex: Female

DRUGS (6)
  1. CLOZAPINE [Interacting]
     Active Substance: CLOZAPINE
     Indication: Psychotic disorder
     Dosage: 600MG
     Route: 048
     Dates: start: 20210520
  2. FLUVOXAMINE [Interacting]
     Active Substance: FLUVOXAMINE
     Indication: Depression
     Dosage: 200MG
     Route: 048
     Dates: start: 20210511, end: 20210617
  3. CLORAZEPATE DIPOTASSIUM [Concomitant]
     Active Substance: CLORAZEPATE DIPOTASSIUM
  4. LACTULOSE [Concomitant]
     Active Substance: LACTULOSE
  5. TROPATEPINE HYDROCHLORIDE [Concomitant]
     Active Substance: TROPATEPINE HYDROCHLORIDE
  6. DESOGESTREL [Concomitant]
     Active Substance: DESOGESTREL

REACTIONS (3)
  - Malaise [Recovered/Resolved]
  - Drug interaction [Recovered/Resolved]
  - Apathy [Recovered/Resolved]

NARRATIVE: CASE EVENT DATE: 20210609
